FAERS Safety Report 6699369-7 (Version None)
Quarter: 2010Q2

REPORT INFORMATION
  Report Type: 
  Country: None (occurrence: None)
  Receive Date: 20100426
  Receipt Date: 20100409
  Transmission Date: 20101027
  Serious: Yes (Hospitalization)
  Sender: FDA-Public Use
  Company Number: APP201000220

PATIENT
  Age: 45 Year
  Sex: Male

DRUGS (3)
  1. FLUOROURACIL               INJCTION USP [Suspect]
     Indication: COLON CANCER
     Dosage: 800MG BOLUS FOLLOWED BY 1200MG INFUSION, INTRAVENOUS
     Route: 042
     Dates: end: 20100315
  2. OXALIPLATIN [Suspect]
     Indication: COLON CANCER
     Dosage: 170 MG, I IN 2 WK, INTRAVENOUS
     Route: 042
     Dates: start: 20100315, end: 20100315
  3. LEUCOVORIN CALCIUM [Suspect]

REACTIONS (4)
  - CHILLS [None]
  - NAUSEA [None]
  - PYREXIA [None]
  - VOMITING [None]
